FAERS Safety Report 5347682-8 (Version None)
Quarter: 2007Q2

REPORT INFORMATION
  Report Type: 
  Country: None (occurrence: None)
  Receive Date: 20070508
  Receipt Date: 20061122
  Transmission Date: 20071010
  Serious: Yes (Other)
  Sender: FDA-Public Use
  Company Number: 237753K06USA

PATIENT
  Age: 44 Year
  Sex: Female

DRUGS (1)
  1. REBIF [Suspect]
     Indication: MULTIPLE SCLEROSIS
     Dates: start: 20060301, end: 20061106

REACTIONS (6)
  - BLOOD BILIRUBIN INCREASED [None]
  - FATIGUE [None]
  - HEPATIC ENZYME INCREASED [None]
  - NAUSEA [None]
  - OCULAR ICTERUS [None]
  - ORAL MUCOSAL DISCOLOURATION [None]
